APPROVED DRUG PRODUCT: HYDROCHLOROTHIAZIDE
Active Ingredient: HYDROCHLOROTHIAZIDE
Strength: 25MG
Dosage Form/Route: TABLET;ORAL
Application: A085182 | Product #002 | TE Code: AB
Applicant: HERITAGE PHARMACEUTICALS INC DBA AVET PHARMACEUTICALS INC
Approved: Approved Prior to Jan 1, 1982 | RLD: No | RS: No | Type: RX